FAERS Safety Report 7418730-6 (Version None)
Quarter: 2011Q2

REPORT INFORMATION
  Report Type: 
  Country: None (occurrence: None)
  Receive Date: 20110415
  Receipt Date: 20110405
  Transmission Date: 20111010
  Serious: Yes (Other)
  Sender: FDA-Public Use
  Company Number: GB-WATSON-2011-05171

PATIENT
  Age: 14 Year
  Sex: Male
  Weight: 67 kg

DRUGS (2)
  1. ALBUTEROL SULFATE [Suspect]
     Indication: BRONCHOSPASM
     Dosage: 1.5 UG/KG, UNK
     Route: 042
  2. SERETIDE                           /01420901/ [Concomitant]
     Indication: PRODUCT USED FOR UNKNOWN INDICATION
     Dosage: UNK
     Route: 055

REACTIONS (5)
  - BLOOD LACTIC ACID INCREASED [None]
  - ACCIDENTAL OVERDOSE [None]
  - VENTRICULAR EXTRASYSTOLES [None]
  - HYPOKALAEMIA [None]
  - HYPERGLYCAEMIA [None]
